FAERS Safety Report 7611456-5 (Version None)
Quarter: 2011Q3

REPORT INFORMATION
  Report Type: 
  Country: None (occurrence: None)
  Receive Date: 20110715
  Receipt Date: 20110711
  Transmission Date: 20111222
  Serious: Yes (Other)
  Sender: FDA-Public Use
  Company Number: AU-ROCHE-789251

PATIENT
  Sex: Female

DRUGS (2)
  1. TOCILIZUMAB [Suspect]
     Indication: RHEUMATOID ARTHRITIS
     Dosage: FORM : INFUSION    VOLUME OF INFUSION GIVEN : 25 ML
     Route: 065
  2. METHOTREXATUM [Concomitant]

REACTIONS (2)
  - HYPOAESTHESIA [None]
  - DIZZINESS [None]
